FAERS Safety Report 11878491 (Version 1)
Quarter: 2015Q4

REPORT INFORMATION
  Report Type: Spontaneous
  Country: US (occurrence: None)
  Receive Date: 20151229
  Receipt Date: 20151229
  Transmission Date: 20160305
  Serious: Yes (Other)
  Sender: FDA-Public Use
  Company Number: None

PATIENT
  Age: 37 Year
  Sex: Female
  Weight: 58.97 kg

DRUGS (12)
  1. ADAPTOGEN [Concomitant]
  2. ORTHOMEGA [Concomitant]
  3. PROBIOMAX DF [Concomitant]
  4. SIMILASE [Concomitant]
  5. OPTICLEANSE GHI [Concomitant]
  6. CURAPHEN [Concomitant]
  7. TRETINOIN. [Suspect]
     Active Substance: TRETINOIN
     Indication: ACNE
     Route: 058
     Dates: start: 20151218, end: 20151219
  8. MITOCHINDRIAL [Concomitant]
  9. LEVOTHYROXINE. [Concomitant]
     Active Substance: LEVOTHYROXINE
  10. LINZESS [Concomitant]
     Active Substance: LINACLOTIDE
  11. VITAMIN D [Concomitant]
     Active Substance: CHOLECALCIFEROL
  12. B-ACTIVE [Concomitant]

REACTIONS (6)
  - Application site erythema [None]
  - Skin haemorrhage [None]
  - Flushing [None]
  - Skin exfoliation [None]
  - Pain of skin [None]
  - Application site burn [None]

NARRATIVE: CASE EVENT DATE: 20151219
